FAERS Safety Report 13568012 (Version 1)
Quarter: 2017Q2

REPORT INFORMATION
  Report Type: Spontaneous
  Country: AE (occurrence: AE)
  Receive Date: 20170522
  Receipt Date: 20170522
  Transmission Date: 20170830
  Serious: Yes (Hospitalization)
  Sender: FDA-Public Use
  Company Number: AE-BAYER-2017-091395

PATIENT
  Age: 65 Year
  Sex: Female
  Weight: 80 kg

DRUGS (10)
  1. INSULIN GLARGINE [Concomitant]
     Active Substance: INSULIN GLARGINE
     Dosage: 26 U, QD
  2. INSULIN REGULAR [Concomitant]
     Active Substance: INSULIN NOS
     Dosage: 8 U, TID
  3. SIMVASTATIN. [Concomitant]
     Active Substance: SIMVASTATIN
     Dosage: 20 MG, QD
  4. PHENYTOIN. [Concomitant]
     Active Substance: PHENYTOIN
     Indication: CONVULSION PROPHYLAXIS
     Dosage: 100 MG, BID
  5. INSULIN REGULAR [Concomitant]
     Active Substance: INSULIN NOS
     Dosage: 24 U, TID
  6. ENOXAPARIN [Concomitant]
     Active Substance: ENOXAPARIN
     Indication: DEEP VEIN THROMBOSIS
     Dosage: 40 MG, QD
     Route: 058
  7. DIAZEPAM. [Concomitant]
     Active Substance: DIAZEPAM
     Indication: HYPERTENSIVE CRISIS
     Dosage: 5 MG, UNK
     Route: 042
  8. ACETYLSALICYLIC ACID({=100 MG) [Suspect]
     Active Substance: ASPIRIN
     Indication: ANTICOAGULANT THERAPY
     Dosage: 100 MG, QD
  9. MAPROTILINE [Concomitant]
     Active Substance: MAPROTILINE
     Indication: DEPRESSION
     Dosage: 25 MG, BID
  10. INSULINE ULTRALENTE [Concomitant]
     Dosage: 26 UNITS, QD

REACTIONS (4)
  - Pulmonary fibrosis [None]
  - Pneumonia [None]
  - Delirium [None]
  - Subdural haematoma [None]
